FAERS Safety Report 9469182 (Version 1)
Quarter: 2013Q3

REPORT INFORMATION
  Report Type: Report from Study
  Country: FR (occurrence: FR)
  Receive Date: 20130821
  Receipt Date: 20130821
  Transmission Date: 20140515
  Serious: Yes (Other)
  Sender: FDA-Public Use
  Company Number: FR-JNJFOC-20130811144

PATIENT
  Sex: Female

DRUGS (2)
  1. DOXORUBICIN HYDROCHLORIDE [Suspect]
     Indication: BREAST CANCER METASTATIC
     Dosage: 30 TO 60 MINUTES; SIX COURSES
     Route: 042
  2. PYRIDOXINE [Concomitant]
     Route: 065

REACTIONS (1)
  - Aortic valve incompetence [Unknown]
